FAERS Safety Report 22347277 (Version 1)
Quarter: 2023Q2

REPORT INFORMATION
  Report Type: Spontaneous
  Country: US (occurrence: US)
  Receive Date: 20230521
  Receipt Date: 20230521
  Transmission Date: 20230721
  Serious: No
  Sender: FDA-Public Use
  Company Number: US-009507513-2304USA009078

PATIENT
  Sex: Female

DRUGS (3)
  1. JANUMET [Suspect]
     Active Substance: METFORMIN HYDROCHLORIDE\SITAGLIPTIN PHOSPHATE
  2. JARDIANCE [Suspect]
     Active Substance: EMPAGLIFLOZIN
  3. TOPROL XL [Suspect]
     Active Substance: METOPROLOL SUCCINATE

REACTIONS (5)
  - Cardiac disorder [Unknown]
  - Product dispensing error [Unknown]
  - Ill-defined disorder [Unknown]
  - Product odour abnormal [Unknown]
  - Adverse drug reaction [Unknown]
